FAERS Safety Report 16338706 (Version 6)
Quarter: 2019Q3

REPORT INFORMATION
  Report Type: Report from Study
  Country: SG (occurrence: SG)
  Receive Date: 20190521
  Receipt Date: 20190821
  Transmission Date: 20191004
  Serious: Yes (Hospitalization)
  Sender: FDA-Public Use
  Company Number: SG-PFIZER INC-2019199414

PATIENT
  Age: 54 Year
  Sex: Female
  Weight: 47 kg

DRUGS (8)
  1. CEPHALEXIN [CEFALEXIN] [Concomitant]
     Active Substance: CEPHALEXIN
     Indication: PROPHYLAXIS
     Dosage: 500 MG, 3X/DAY
     Route: 048
     Dates: start: 20190420, end: 20190428
  2. PACLITAXEL. [Suspect]
     Active Substance: PACLITAXEL
     Indication: OVARIAN CANCER
     Dosage: 243 MG, EVERY 3 WEEKS
     Route: 042
     Dates: start: 20190215, end: 20190329
  3. PARACETAMOL [Concomitant]
     Active Substance: ACETAMINOPHEN
     Indication: ANALGESIC THERAPY
     Dosage: 1 G, 3X/DAY
     Route: 048
     Dates: start: 20190420, end: 20190428
  4. CARMINATIVE [MAGNESIUM CARBONATE;SODIUM BICARBONATE] [Concomitant]
     Indication: ANTACID THERAPY
     Dosage: 10 ML, 3X/DAY
     Route: 048
     Dates: start: 20190420, end: 20190428
  5. AVASTIN [Suspect]
     Active Substance: BEVACIZUMAB
     Indication: OVARIAN CANCER
     Dosage: 759 MG, EVERY 3 WEEKS
     Route: 042
     Dates: start: 20190215, end: 20190308
  6. ARCOXIA [Concomitant]
     Active Substance: ETORICOXIB
     Indication: ANALGESIC THERAPY
     Dosage: 60 MG, 2X/DAY
     Route: 048
     Dates: start: 20190420, end: 20190428
  7. CARBOPLATIN. [Suspect]
     Active Substance: CARBOPLATIN
     Indication: OVARIAN CANCER
     Dosage: 415 MG, EVERY 3 WEEKS
     Route: 042
     Dates: start: 20190215, end: 20190329
  8. VITAMIN C [Concomitant]
     Active Substance: ASCORBIC ACID
     Indication: SUPPLEMENTATION THERAPY
     Dosage: 1 G, DAILY
     Route: 048
     Dates: start: 20190420

REACTIONS (1)
  - Abdominal abscess [Recovering/Resolving]

NARRATIVE: CASE EVENT DATE: 20190505
